FAERS Safety Report 5491645-9 (Version None)
Quarter: 2007Q4

REPORT INFORMATION
  Report Type: 
  Country: None (occurrence: None)
  Receive Date: 20071022
  Receipt Date: 20071010
  Transmission Date: 20080405
  Serious: Yes (Hospitalization)
  Sender: FDA-Public Use
  Company Number: US-JNJFOC-20071002864

PATIENT
  Sex: Male
  Weight: 102.06 kg

DRUGS (8)
  1. FENTANYL TRANSDERMAL SYSTEM [Suspect]
     Indication: PAIN
     Route: 062
  2. LEVOTHYROXINE SODIUM [Concomitant]
     Indication: THYROID DISORDER
     Route: 048
  3. TOPROL-XL [Concomitant]
     Indication: HYPERTENSION
     Route: 048
  4. HYDROCORTISONE [Concomitant]
     Dosage: 1/2 TABLET EACH NIGHT
     Route: 048
  5. HYDROCORTISONE [Concomitant]
     Route: 048
  6. ZEMPLAR [Concomitant]
     Indication: THYROID DISORDER
     Route: 048
  7. KLONOPIN [Concomitant]
     Indication: RESTLESS LEGS SYNDROME
     Route: 048
  8. KLONOPIN [Concomitant]
     Indication: SLEEP DISORDER
     Route: 048

REACTIONS (4)
  - DYSPNOEA [None]
  - EYE ROLLING [None]
  - HYPOTENSION [None]
  - OBSTRUCTIVE AIRWAYS DISORDER [None]
